FAERS Safety Report 9000651 (Version 1)
Quarter: 2012Q4

REPORT INFORMATION
  Report Type: Spontaneous
  Country: SE (occurrence: None)
  Receive Date: 20121226
  Receipt Date: 20121226
  Transmission Date: 20130627
  Serious: Yes (Hospitalization)
  Sender: FDA-Public Use
  Company Number: ENT 2012-0180

PATIENT
  Age: 77 Year
  Sex: Female

DRUGS (6)
  1. COMTESS [Suspect]
     Indication: PARKINSON^S DISEASE
     Dates: start: 201206, end: 201207
  2. SEROQUEL [Concomitant]
  3. EXELON [Concomitant]
  4. MADOPARK QUICK [Concomitant]
  5. ORSTANORM [Concomitant]
  6. MADOPARK DEPOT [Concomitant]

REACTIONS (5)
  - Musculoskeletal stiffness [None]
  - Diarrhoea [None]
  - Fluid intake reduced [None]
  - Hallucination, visual [None]
  - Hypophagia [None]
